FAERS Safety Report 9725433 (Version 1)
Quarter: 2013Q4

REPORT INFORMATION
  Report Type: Spontaneous
  Country: US (occurrence: None)
  Receive Date: 20131129
  Receipt Date: 20131129
  Transmission Date: 20140711
  Serious: Yes (Life-Threatening, Hospitalization)
  Sender: FDA-Public Use
  Company Number: 54973 AE # 1516

PATIENT
  Age: 78 Year
  Sex: Male

DRUGS (8)
  1. HYLAND^S LEG CRAMPS TABLETS [Suspect]
     Indication: BODY TEMPERATURE
     Dosage: 2 TABS AS NEEDED/BEDTIME
  2. HYLAND^S LEG CRAMPS TABLETS [Suspect]
     Indication: MUSCLE SPASMS
     Dosage: 2 TABS AS NEEDED/BEDTIME
  3. ENALAPRIL (VASOTEC) [Concomitant]
  4. FINASTERIDE (PROSCAR) [Concomitant]
  5. SIMVASTATIN (ZOCOR) [Concomitant]
  6. OMEPRAZOLE (PRILOSEC) [Concomitant]
  7. ZOLPIDEM (AMBIEN) [Concomitant]
  8. VITAMIN D [Concomitant]

REACTIONS (2)
  - Loss of consciousness [None]
  - Hypotension [None]
